FAERS Safety Report 6983956-2 (Version None)
Quarter: 2010Q3

REPORT INFORMATION
  Report Type: 
  Country: None (occurrence: None)
  Receive Date: 20100914
  Receipt Date: 20090423
  Transmission Date: 20110219
  Serious: No
  Sender: FDA-Public Use
  Company Number: US-WYE-H09116209

PATIENT

DRUGS (1)
  1. TORISEL [Suspect]
     Route: 042
     Dates: start: 20090423

REACTIONS (1)
  - EXTRAVASATION [None]
